FAERS Safety Report 6147121-3 (Version None)
Quarter: 2009Q2

REPORT INFORMATION
  Report Type: 
  Country: None (occurrence: None)
  Receive Date: 20090403
  Receipt Date: 20090325
  Transmission Date: 20091009
  Serious: Yes (Other)
  Sender: FDA-Public Use
  Company Number: FRP09000389

PATIENT
  Age: 94 Year
  Sex: Female

DRUGS (1)
  1. ACTONEL [Suspect]
     Indication: OSTEITIS DEFORMANS
     Dosage: 30 MG, 1 /DAY, ORAL
     Route: 048
     Dates: start: 20081219, end: 20090118

REACTIONS (10)
  - DYSPHAGIA [None]
  - EATING DISORDER [None]
  - MOUTH HAEMORRHAGE [None]
  - MOUTH ULCERATION [None]
  - ORAL CANDIDIASIS [None]
  - ORAL MUCOSAL ERYTHEMA [None]
  - ORAL PAIN [None]
  - PURULENT DISCHARGE [None]
  - SPEECH DISORDER [None]
  - STOMATITIS [None]
